FAERS Safety Report 4402752-3 (Version None)
Quarter: 2004Q3

REPORT INFORMATION
  Report Type: 
  Country: None (occurrence: None)
  Receive Date: 20040720
  Receipt Date: 20040720
  Transmission Date: 20050211
  Serious: Yes (Hospitalization)
  Sender: FDA-Public Use
  Company Number: None

PATIENT
  Sex: Male

DRUGS (1)
  1. ALTACE [Suspect]
     Dosage: 5 MG 1 QD ORAL
     Route: 048

REACTIONS (2)
  - COLITIS ISCHAEMIC [None]
  - RECTAL HAEMORRHAGE [None]
